FAERS Safety Report 8965075 (Version 2)
Quarter: 2013Q2

REPORT INFORMATION
  Report Type: Spontaneous
  Country: US (occurrence: US)
  Receive Date: 20121213
  Receipt Date: 20130524
  Transmission Date: 20140414
  Serious: No
  Sender: FDA-Public Use
  Company Number: US-BRISTOL-MYERS SQUIBB COMPANY-16477952

PATIENT
  Sex: Female

DRUGS (3)
  1. PRAVACHOL [Suspect]
     Indication: BLOOD CHOLESTEROL INCREASED
     Dosage: PRAVACHOL RM
  2. NORVASC [Concomitant]
  3. GLUCOPHAGE [Concomitant]

REACTIONS (3)
  - Muscular weakness [Unknown]
  - Drug ineffective [Unknown]
  - Blood pressure increased [Unknown]
